FAERS Safety Report 9521760 (Version 1)
Quarter: 2013Q3

REPORT INFORMATION
  Report Type: Spontaneous
  Country: US (occurrence: None)
  Receive Date: 20130911
  Receipt Date: 20130911
  Transmission Date: 20140515
  Serious: No
  Sender: FDA-Public Use
  Company Number: AEUSA201300162

PATIENT
  Age: 91 Year
  Sex: Female

DRUGS (2)
  1. GAMMAKED [Suspect]
     Indication: CHRONIC INFLAMMATORY DEMYELINATING POLYRADICULONEUROPATHY
     Route: 042
     Dates: end: 20130422
  2. PREDNISONE [Concomitant]

REACTIONS (5)
  - Dyspnoea [None]
  - Swelling face [None]
  - Myalgia [None]
  - Arthralgia [None]
  - Fluid retention [None]
